FAERS Safety Report 17154914 (Version 1)
Quarter: 2019Q4

REPORT INFORMATION
  Report Type: Report from Study
  Country: US (occurrence: US)
  Receive Date: 20191214
  Receipt Date: 20191214
  Transmission Date: 20200122
  Serious: No
  Sender: FDA-Public Use
  Company Number: NVSC2019US016875

PATIENT
  Age: 68 Year
  Sex: Male
  Weight: 56.6 kg

DRUGS (6)
  1. ETHAMBUTOL [Concomitant]
     Active Substance: ETHAMBUTOL HYDROCHLORIDE
     Indication: LUNG DISORDER
  2. AZITHROMYCIN ANHYDROUS. [Concomitant]
     Active Substance: AZITHROMYCIN ANHYDROUS
     Indication: LUNG DISORDER
  3. AZITHROMYCIN ANHYDROUS. [Concomitant]
     Active Substance: AZITHROMYCIN ANHYDROUS
     Indication: MYCOBACTERIUM AVIUM COMPLEX INFECTION
     Dosage: 500 MG
     Route: 065
     Dates: start: 201702
  4. ETHAMBUTOL [Concomitant]
     Active Substance: ETHAMBUTOL HYDROCHLORIDE
     Indication: MYCOBACTERIUM AVIUM COMPLEX INFECTION
     Dosage: 1200 MG
     Route: 065
     Dates: start: 201809
  5. LAMPRENE [Suspect]
     Active Substance: CLOFAZIMINE
     Indication: MYCOBACTERIUM AVIUM COMPLEX INFECTION
     Dosage: 100 MG, QD
     Route: 048
     Dates: start: 20190912, end: 20191011
  6. LAMPRENE [Suspect]
     Active Substance: CLOFAZIMINE
     Indication: LUNG DISORDER

REACTIONS (1)
  - Abdominal pain [Recovered/Resolved]

NARRATIVE: CASE EVENT DATE: 20191001
